FAERS Safety Report 23065235 (Version 1)
Quarter: 2023Q4

REPORT INFORMATION
  Report Type: Spontaneous
  Country: US (occurrence: US)
  Receive Date: 20231013
  Receipt Date: 20231013
  Transmission Date: 20240110
  Serious: Yes (Death, Life-Threatening, Hospitalization, Other)
  Sender: FDA-Public Use
  Company Number: US-HORIZON THERAPEUTICS-HZN-2023-007798

PATIENT

DRUGS (9)
  1. PREDNISONE [Suspect]
     Active Substance: PREDNISONE
     Indication: Paraneoplastic pemphigus
     Dosage: LONG TERM
     Route: 065
  2. CYCLOSPORINE [Concomitant]
     Active Substance: CYCLOSPORINE
     Indication: Paraneoplastic pemphigus
  3. REMDESIVIR [Concomitant]
     Active Substance: REMDESIVIR
  4. VORICONAZOLE [Concomitant]
     Active Substance: VORICONAZOLE
  5. OBINUTUZUMAB [Concomitant]
     Active Substance: OBINUTUZUMAB
     Indication: Follicular lymphoma
  6. BACTRIM [Concomitant]
     Active Substance: SULFAMETHOXAZOLE\TRIMETHOPRIM
     Indication: Paraneoplastic pemphigus
  7. CASIRIVIMAB\IMDEVIMAB [Concomitant]
     Active Substance: CASIRIVIMAB\IMDEVIMAB
  8. ANIDULAFUNGIN [Concomitant]
     Active Substance: ANIDULAFUNGIN
  9. MEROPENEM [Concomitant]
     Active Substance: MEROPENEM

REACTIONS (1)
  - Bronchopulmonary aspergillosis [Fatal]
